FAERS Safety Report 9631451 (Version 2)
Quarter: 2013Q4

REPORT INFORMATION
  Report Type: Spontaneous
  Country: FR (occurrence: FR)
  Receive Date: 20131018
  Receipt Date: 20131218
  Transmission Date: 20140711
  Serious: Yes (Life-Threatening, Hospitalization)
  Sender: FDA-Public Use
  Company Number: FR-SA-2013SA103618

PATIENT
  Age: 80 Year
  Sex: Male
  Weight: 89 kg

DRUGS (1)
  1. JEVTANA [Suspect]
     Indication: PROSTATE CANCER METASTATIC
     Route: 042
     Dates: start: 20130919, end: 20130919

REACTIONS (4)
  - Pancytopenia [Unknown]
  - Pyrexia [Unknown]
  - Diarrhoea [Recovered/Resolved]
  - Dehydration [Recovered/Resolved]
